FAERS Safety Report 25339877 (Version 3)
Quarter: 2025Q3

REPORT INFORMATION
  Report Type: Report from Study
  Country: US (occurrence: US)
  Receive Date: 20250521
  Receipt Date: 20250919
  Transmission Date: 20251021
  Serious: No
  Sender: SUNOVION
  Company Number: US-SUMITOMO PHARMA SWITZERLAND GMBH-2025SPA005107

PATIENT
  Age: 62 Year
  Sex: Male

DRUGS (9)
  1. ORGOVYX [Suspect]
     Active Substance: RELUGOLIX
     Indication: Prostate cancer
     Dosage: 360 MG, SINGLE
     Route: 048
     Dates: start: 20250416, end: 20250416
  2. ORGOVYX [Suspect]
     Active Substance: RELUGOLIX
     Dosage: 120 MG, QD
     Route: 048
     Dates: start: 20250417
  3. ATORVASTATIN [Concomitant]
     Active Substance: ATORVASTATIN
  4. FARXIGA [Concomitant]
     Active Substance: DAPAGLIFLOZIN PROPANEDIOL
  5. GLIMEPIRIDE [Concomitant]
     Active Substance: GLIMEPIRIDE
  6. LANTUS [Concomitant]
     Active Substance: INSULIN GLARGINE
  7. LISINOPRIL [Concomitant]
     Active Substance: LISINOPRIL
  8. MOUNJARO [Concomitant]
     Active Substance: TIRZEPATIDE
  9. METFORMIN [Concomitant]
     Active Substance: METFORMIN HYDROCHLORIDE

REACTIONS (6)
  - Mood swings [Unknown]
  - Blood pressure decreased [Unknown]
  - Dizziness [Unknown]
  - Depression [Unknown]
  - Fatigue [Unknown]
  - Hot flush [Unknown]
